FAERS Safety Report 9887660 (Version 1)
Quarter: 2013Q4

REPORT INFORMATION
  Report Type: Spontaneous
  Country: US (occurrence: None)
  Receive Date: 20131223
  Receipt Date: 20131223
  Transmission Date: 20140711
  Serious: No
  Sender: FDA-Public Use
  Company Number: 220109LEO

PATIENT
  Age: 59 Year
  Sex: Female

DRUGS (1)
  1. PICATO (GEL) [Suspect]
     Indication: ACTINIC KERATOSIS
     Dosage: TOPICAL
     Dates: start: 201310

REACTIONS (3)
  - Rash generalised [None]
  - Drug administration error [None]
  - Incorrect drug administration duration [None]
